FAERS Safety Report 24782637 (Version 6)
Quarter: 2025Q1

REPORT INFORMATION
  Report Type: Spontaneous
  Country: CA (occurrence: CA)
  Receive Date: 20241227
  Receipt Date: 20250303
  Transmission Date: 20250409
  Serious: Yes (Other)
  Sender: PFIZER
  Company Number: CA-PFIZER INC-202400289266

PATIENT
  Age: 74 Year
  Sex: Female

DRUGS (7)
  1. ABRILADA [Suspect]
     Active Substance: ADALIMUMAB-AFZB
     Indication: Crohn^s disease
     Route: 058
     Dates: start: 20241021
  2. ABRILADA [Suspect]
     Active Substance: ADALIMUMAB-AFZB
     Route: 058
     Dates: start: 20241023
  3. ABRILADA [Suspect]
     Active Substance: ADALIMUMAB-AFZB
     Route: 058
     Dates: start: 20241216
  4. ABRILADA [Suspect]
     Active Substance: ADALIMUMAB-AFZB
     Route: 058
     Dates: start: 20241220
  5. ABRILADA [Suspect]
     Active Substance: ADALIMUMAB-AFZB
     Route: 058
     Dates: start: 20250103
  6. ABRILADA [Suspect]
     Active Substance: ADALIMUMAB-AFZB
     Route: 058
     Dates: start: 20250117
  7. IRON [Concomitant]
     Active Substance: IRON

REACTIONS (10)
  - Hypertension [Not Recovered/Not Resolved]
  - Hypoaesthesia [Unknown]
  - Joint swelling [Unknown]
  - Anxiety [Unknown]
  - Device difficult to use [Unknown]
  - Fear of injection [Unknown]
  - Drug dose omission by device [Unknown]
  - Incorrect dose administered [Unknown]
  - Off label use [Unknown]
  - Intentional dose omission [Unknown]

NARRATIVE: CASE EVENT DATE: 20240101
